FAERS Safety Report 5952064-1 (Version None)
Quarter: 2008Q4

REPORT INFORMATION
  Report Type: 
  Country: None (occurrence: None)
  Receive Date: 20081113
  Receipt Date: 20080213
  Transmission Date: 20090506
  Serious: No
  Sender: FDA-Public Use
  Company Number: A0709370A

PATIENT
  Sex: Male

DRUGS (3)
  1. COREG [Suspect]
     Indication: HYPERTENSION
     Dosage: 25MG PER DAY
     Route: 048
  2. LIPITOR [Concomitant]
  3. BENICAR [Concomitant]

REACTIONS (1)
  - SLEEP DISORDER [None]
